FAERS Safety Report 4983137-8 (Version None)
Quarter: 2006Q2

REPORT INFORMATION
  Report Type: 
  Country: None (occurrence: None)
  Receive Date: 20060426
  Receipt Date: 20050128
  Transmission Date: 20061013
  Serious: Yes (Hospitalization)
  Sender: FDA-Public Use
  Company Number: 2005SE00572

PATIENT
  Age: 22052 Day
  Sex: Male
  Weight: 56 kg

DRUGS (8)
  1. TCV-116 [Suspect]
     Indication: DIABETIC NEPHROPATHY
     Route: 048
     Dates: start: 20040901, end: 20040927
  2. TCV-116 [Suspect]
     Route: 048
     Dates: start: 20040928, end: 20041025
  3. TCV-116 [Suspect]
     Route: 048
     Dates: start: 20041026, end: 20050122
  4. GLIMICRON [Concomitant]
     Indication: DIABETES MELLITUS NON-INSULIN-DEPENDENT
     Route: 048
  5. ATELEC [Concomitant]
     Indication: HYPERTENSION
     Route: 048
  6. HYALEIN [Concomitant]
     Route: 047
  7. CRAVIT [Concomitant]
     Route: 047
  8. RIZABEN [Concomitant]
     Route: 047

REACTIONS (9)
  - ACUTE MYOCARDIAL INFARCTION [None]
  - ANGINA UNSTABLE [None]
  - BLOOD CREATININE INCREASED [None]
  - BLOOD PRESSURE SYSTOLIC INCREASED [None]
  - CARDIAC FAILURE ACUTE [None]
  - CARDIAC MURMUR [None]
  - HAEMODIALYSIS [None]
  - NOCTURNAL DYSPNOEA [None]
  - SILENT MYOCARDIAL INFARCTION [None]
